FAERS Safety Report 13894582 (Version 1)
Quarter: 2017Q3

REPORT INFORMATION
  Report Type: Spontaneous
  Country: US (occurrence: US)
  Receive Date: 20170816
  Receipt Date: 20170816
  Transmission Date: 20171127
  Serious: Yes (Life-Threatening, Hospitalization, Disabling, Other)
  Sender: FDA-Public Use
  Company Number: None

PATIENT
  Age: 38 Year
  Sex: Female
  Weight: 56.25 kg

DRUGS (1)
  1. QUININE [Suspect]
     Active Substance: QUININE
     Indication: DIAPHRAGMALGIA
     Dosage: ?          QUANTITY:1 TABLET(S);?
     Route: 048
     Dates: start: 20030724, end: 20030730

REACTIONS (24)
  - Body temperature increased [None]
  - Hallucination [None]
  - Ear pain [None]
  - Ataxia [None]
  - Rash generalised [None]
  - Migraine with aura [None]
  - Hyperacusis [None]
  - Diarrhoea [None]
  - Sleep paralysis [None]
  - Aphasia [None]
  - Paraesthesia [None]
  - Tinnitus [None]
  - Depression [None]
  - Narcolepsy [None]
  - Cervical radiculopathy [None]
  - Feeling hot [None]
  - Chills [None]
  - Pain [None]
  - Cognitive disorder [None]
  - Gastrointestinal motility disorder [None]
  - Acute kidney injury [None]
  - Cataplexy [None]
  - Loss of employment [None]
  - Haemangioma [None]

NARRATIVE: CASE EVENT DATE: 20030724
